FAERS Safety Report 17232884 (Version 1)
Quarter: 2020Q1

REPORT INFORMATION
  Report Type: Report from Study
  Country: US (occurrence: US)
  Receive Date: 20200103
  Receipt Date: 20200103
  Transmission Date: 20200409
  Serious: Yes (Death)
  Sender: FDA-Public Use
  Company Number: US-ACTELION-A-US2019-198345

PATIENT
  Sex: Male
  Weight: 126.08 kg

DRUGS (3)
  1. OPSUMIT [Suspect]
     Active Substance: MACITENTAN
     Indication: PULMONARY HYPERTENSION
     Dosage: 10 MG, QD
     Route: 048
  2. AMLODIPINE [Concomitant]
     Active Substance: AMLODIPINE BESYLATE
  3. TADALAFIL. [Concomitant]
     Active Substance: TADALAFIL

REACTIONS (7)
  - Lung disorder [Fatal]
  - Drug ineffective [Unknown]
  - Dyspnoea [Unknown]
  - Peripheral swelling [Unknown]
  - Oxygen consumption increased [Unknown]
  - Myocardial infarction [Fatal]
  - Joint swelling [Unknown]
